FAERS Safety Report 19630195 (Version 1)
Quarter: 2021Q3

REPORT INFORMATION
  Report Type: Spontaneous
  Country: MX (occurrence: MX)
  Receive Date: 20210728
  Receipt Date: 20210728
  Transmission Date: 20211014
  Serious: Yes (Other)
  Sender: FDA-Public Use
  Company Number: MX-PFIZER INC-2021893212

PATIENT
  Age: 23 Year
  Sex: Male

DRUGS (1)
  1. NEURONTIN [Suspect]
     Active Substance: GABAPENTIN
     Indication: INFANTILE SPASMS
     Dosage: 4 DF

REACTIONS (2)
  - Drug dependence [Unknown]
  - Off label use [Unknown]
